FAERS Safety Report 11623460 (Version 1)
Quarter: 2015Q4

REPORT INFORMATION
  Report Type: Spontaneous
  Country: US (occurrence: US)
  Receive Date: 20151013
  Receipt Date: 20151013
  Transmission Date: 20160304
  Serious: No
  Sender: FDA-Public Use
  Company Number: US-JNJFOC-20141214930

PATIENT
  Age: 13 Year
  Sex: Female
  Weight: 63.5 kg

DRUGS (1)
  1. CHILDRENS TYLENOL [Suspect]
     Active Substance: ACETAMINOPHEN
     Indication: PAIN MANAGEMENT
     Dosage: 6 TEASPOON
     Route: 048
     Dates: start: 20141217

REACTIONS (2)
  - Product use issue [Unknown]
  - Expired product administered [Unknown]
